FAERS Safety Report 5562353-0 (Version None)
Quarter: 2007Q4

REPORT INFORMATION
  Report Type: 
  Country: None (occurrence: None)
  Receive Date: 20071215
  Receipt Date: 20070727
  Transmission Date: 20080405
  Serious: No
  Sender: FDA-Public Use
  Company Number: US-AMGEN-KDL229602

PATIENT
  Sex: Female
  Weight: 71.7 kg

DRUGS (9)
  1. PROCRIT [Suspect]
     Indication: ANAEMIA
  2. ARANESP [Suspect]
  3. RAPTIVA [Concomitant]
  4. NEXIUM [Concomitant]
  5. AVALIDE [Concomitant]
  6. VITAMIN CAP [Concomitant]
  7. LASIX [Concomitant]
  8. COREG [Concomitant]
  9. COUMADIN [Concomitant]

REACTIONS (2)
  - GASTROINTESTINAL HAEMORRHAGE [None]
  - THERAPEUTIC RESPONSE DECREASED [None]
